FAERS Safety Report 7338470-1 (Version None)
Quarter: 2011Q1

REPORT INFORMATION
  Report Type: 
  Country: None (occurrence: None)
  Receive Date: 20110308
  Receipt Date: 20110223
  Transmission Date: 20110831
  Serious: Yes (Hospitalization)
  Sender: FDA-Public Use
  Company Number: FR-ELI_LILLY_AND_COMPANY-FR201103001273

PATIENT
  Age: 40 Year
  Sex: Female

DRUGS (7)
  1. SKENAN [Concomitant]
  2. NEXIUM [Concomitant]
  3. CYMBALTA [Suspect]
     Route: 048
     Dates: end: 20090601
  4. CHRONO-INDOCID [Concomitant]
     Indication: ANKYLOSING SPONDYLITIS
     Dosage: 2 D/F, DAILY (1/D)
     Dates: start: 20090301, end: 20090601
  5. ACUPAN [Concomitant]
     Dosage: 4 D/F, DAILY (1/D)
     Dates: start: 20090601
  6. SEVREDOL [Concomitant]
  7. ACUPAN [Concomitant]
     Indication: PAIN
     Dosage: AS NEEDED
     Dates: start: 20090301, end: 20090601

REACTIONS (4)
  - OEDEMA [None]
  - OROPHARYNGEAL PAIN [None]
  - DYSPNOEA [None]
  - DYSPHAGIA [None]
